FAERS Safety Report 25684743 (Version 1)
Quarter: 2025Q3

REPORT INFORMATION
  Report Type: Spontaneous
  Country: JP (occurrence: JP)
  Receive Date: 20250815
  Receipt Date: 20250815
  Transmission Date: 20251020
  Serious: Yes (Other)
  Sender: ROCHE
  Company Number: JP-CHUGAI-2025025380

PATIENT
  Age: 64 Year
  Sex: Male

DRUGS (1)
  1. ACTEMRA [Suspect]
     Active Substance: TOCILIZUMAB
     Indication: Castleman^s disease
     Route: 065

REACTIONS (4)
  - Myelodysplastic syndrome [Unknown]
  - Atypical mycobacterial infection [Unknown]
  - Subcutaneous abscess [Unknown]
  - Acute febrile neutrophilic dermatosis [Unknown]
